FAERS Safety Report 5177088-6 (Version None)
Quarter: 2006Q4

REPORT INFORMATION
  Report Type: 
  Country: None (occurrence: None)
  Receive Date: 20061218
  Receipt Date: 20061211
  Transmission Date: 20070319
  Serious: Yes (Death)
  Sender: FDA-Public Use
  Company Number: PHRM2006FR03284

PATIENT
  Age: 85 Year
  Sex: Female

DRUGS (5)
  1. GLEEVEC [Suspect]
     Indication: CHRONIC MYELOID LEUKAEMIA
     Dosage: 400 MG, QD
     Route: 048
     Dates: start: 20060908
  2. CORDARONE [Suspect]
     Dosage: 1 G, QD
     Route: 048
  3. DIGOXIN [Suspect]
     Dosage: 0.5 G, QD
     Route: 048
  4. PREVISCAN [Suspect]
     Route: 048
  5. COVERSYL /FRA/ [Suspect]
     Dosage: 2 MG, QD
     Route: 048

REACTIONS (2)
  - DEATH [None]
  - SUDDEN DEATH [None]
